FAERS Safety Report 19861135 (Version 1)
Quarter: 2021Q3

REPORT INFORMATION
  Report Type: Spontaneous
  Country: DE (occurrence: DE)
  Receive Date: 20210920
  Receipt Date: 20210920
  Transmission Date: 20211014
  Serious: Yes (Congenital Anomaly)
  Sender: FDA-Public Use
  Company Number: DE-PFIZER INC-202101156653

PATIENT
  Age: 3 Week
  Sex: Female
  Weight: 3.62 kg

DRUGS (8)
  1. MESALAZINE [Suspect]
     Active Substance: MESALAMINE
     Indication: COLITIS ULCERATIVE
     Route: 064
     Dates: start: 20191221, end: 20200927
  2. PREDNISOLONE. [Concomitant]
     Active Substance: PREDNISOLONE
     Indication: COLITIS ULCERATIVE
     Dosage: 5 MG, DAILY
     Route: 064
     Dates: start: 20191221, end: 20200927
  3. PREGABALIN. [Suspect]
     Active Substance: PREGABALIN
     Indication: PAIN
     Dosage: 50 MG, DAILY
     Route: 064
  4. CALCIUM [Concomitant]
     Active Substance: CALCIUM
     Indication: PROPHYLAXIS
     Dosage: 500 MG, DAILY
     Route: 064
     Dates: end: 20200225
  5. PANTOPRAZOLE [Concomitant]
     Active Substance: PANTOPRAZOLE
     Indication: GASTRITIS PROPHYLAXIS
     Dosage: 20 MG, AS NEEDED
     Route: 064
  6. VITAMIN D [ERGOCALCIFEROL] [Concomitant]
     Active Substance: ERGOCALCIFEROL
     Indication: VITAMIN D DEFICIENCY
     Dosage: 400 IU, DAILY
     Route: 064
  7. ZOSTEX [Concomitant]
     Active Substance: BRIVUDINE
     Indication: HERPES ZOSTER
     Dosage: 125 MG, DAILY
     Route: 064
  8. VITAMIN B KOMPLEX [CALCIUM PANTOTHENATE;NICOTINAMIDE;PYRIDOXINE HYDROC [Concomitant]
     Indication: VITAMIN B COMPLEX DEFICIENCY
     Route: 064

REACTIONS (2)
  - Maternal exposure during pregnancy [Unknown]
  - Atrial septal defect [Unknown]
